FAERS Safety Report 15640910 (Version 1)
Quarter: 2018Q4

REPORT INFORMATION
  Report Type: Spontaneous
  Country: US (occurrence: US)
  Receive Date: 20181120
  Receipt Date: 20181120
  Transmission Date: 20190205
  Serious: No
  Sender: FDA-Public Use
  Company Number: US-BAYER-2018-213934

PATIENT
  Age: 63 Year
  Sex: Female
  Weight: 69 kg

DRUGS (1)
  1. LOTRIMIN ULTRA [Suspect]
     Active Substance: BUTENAFINE HYDROCHLORIDE
     Indication: FUNGAL INFECTION
     Dosage: UNK
     Route: 061
     Dates: start: 201810

REACTIONS (2)
  - Product use in unapproved indication [Unknown]
  - Circumstance or information capable of leading to medication error [Unknown]

NARRATIVE: CASE EVENT DATE: 201810
